FAERS Safety Report 14688616 (Version 2)
Quarter: 2018Q1

REPORT INFORMATION
  Report Type: Report from Study
  Country: DE (occurrence: DE)
  Receive Date: 20180328
  Receipt Date: 20180330
  Transmission Date: 20180509
  Serious: Yes (Disabling, Other)
  Sender: FDA-Public Use
  Company Number: DE-PFIZER INC-2018123753

PATIENT
  Age: 71 Year
  Sex: Female
  Weight: 66 kg

DRUGS (7)
  1. L-THYROXINE [Concomitant]
     Active Substance: LEVOTHYROXINE
     Dosage: 125 UG, 1X/DAY (QD)
  2. LEDIPASVIR W/SOFOSBUVIR [Suspect]
     Active Substance: LEDIPASVIR\SOFOSBUVIR
     Indication: CHRONIC HEPATITIS C
     Dosage: 1 DF, 1X/DAY (QD)
     Route: 048
     Dates: start: 20150122, end: 20150713
  3. PANTOPRAZOLE [Suspect]
     Active Substance: PANTOPRAZOLE
     Dosage: 40 MG, 1X/DAY (QD)
  4. DENOSUMAB [Concomitant]
     Active Substance: DENOSUMAB
     Dosage: UNK
  5. TOLTERODIN [Concomitant]
     Active Substance: TOLTERODINE TARTRATE
     Dosage: 1 MG, UNK
  6. HCT [Concomitant]
     Active Substance: HYDROCHLOROTHIAZIDE
     Dosage: 40 MG, 1X/DAY (QD)
  7. ENALAPRIL [Concomitant]
     Active Substance: ENALAPRIL
     Dosage: 10 MG, 1X/DAY (QD)

REACTIONS (1)
  - Hepatocellular carcinoma [Not Recovered/Not Resolved]

NARRATIVE: CASE EVENT DATE: 20170630
